FAERS Safety Report 5073171-4 (Version None)
Quarter: 2006Q3

REPORT INFORMATION
  Report Type: 
  Country: None (occurrence: None)
  Receive Date: 20060803
  Receipt Date: 20060719
  Transmission Date: 20061208
  Serious: Yes (Other)
  Sender: FDA-Public Use
  Company Number: DO200606003362

PATIENT
  Age: 52 Year
  Sex: Female

DRUGS (1)
  1. DULOXETINE HYDROCHLORIDE (DULOXETINE HYDROCHLORIDE) CAPSULE [Suspect]
     Indication: DEPRESSION
     Dosage: 60 MG DAILY (1/D) ORAL
     Route: 048

REACTIONS (2)
  - NON-HODGKIN'S LYMPHOMA [None]
  - TREMOR [None]
